FAERS Safety Report 4394343-8 (Version None)
Quarter: 2004Q3

REPORT INFORMATION
  Report Type: 
  Country: None (occurrence: None)
  Receive Date: 20040706
  Receipt Date: 20040625
  Transmission Date: 20050211
  Serious: Yes (Death)
  Sender: FDA-Public Use
  Company Number: USA-2004-0015763

PATIENT
  Age: 81 Year
  Sex: Female

DRUGS (1)
  1. OXYCONTIN [Suspect]
     Dosage: 20 MG, BID

REACTIONS (1)
  - CHRONIC OBSTRUCTIVE AIRWAYS DISEASE [None]
